FAERS Safety Report 7907719-6 (Version None)
Quarter: 2011Q4

REPORT INFORMATION
  Report Type: 
  Country: None (occurrence: None)
  Receive Date: 20111110
  Receipt Date: 20111028
  Transmission Date: 20120403
  Serious: Yes (Other)
  Sender: FDA-Public Use
  Company Number: CA-ELI_LILLY_AND_COMPANY-CA201110007902

PATIENT

DRUGS (1)
  1. ZYPREXA [Suspect]
     Dosage: 1 DF, UNK

REACTIONS (3)
  - HYPERGLYCAEMIA [None]
  - MYOCARDIAL INFARCTION [None]
  - DIABETES MELLITUS [None]
